FAERS Safety Report 24318574 (Version 2)
Quarter: 2024Q4

REPORT INFORMATION
  Report Type: Spontaneous
  Country: SA (occurrence: SA)
  Receive Date: 20240913
  Receipt Date: 20241011
  Transmission Date: 20250114
  Serious: Yes (Hospitalization)
  Sender: GLAXOSMITHKLINE
  Company Number: SA-GLAXOSMITHKLINE-SA2024EME111755

PATIENT

DRUGS (1)
  1. BENLYSTA [Suspect]
     Active Substance: BELIMUMAB
     Indication: Systemic lupus erythematosus
     Dosage: 10 MG/KG, MO
     Route: 042
     Dates: start: 20240522, end: 20240722

REACTIONS (5)
  - Condition aggravated [Recovered/Resolved]
  - Sensitive skin [Unknown]
  - Swelling face [Unknown]
  - Lip swelling [Unknown]
  - Drug ineffective [Recovered/Resolved]
